FAERS Safety Report 21173026 (Version 1)
Quarter: 2022Q3

REPORT INFORMATION
  Report Type: Spontaneous
  Country: ES (occurrence: ES)
  Receive Date: 20220804
  Receipt Date: 20220804
  Transmission Date: 20221027
  Serious: Yes (Other)
  Sender: FDA-Public Use
  Company Number: ES-NOVARTISPH-NVSC2022ES176097

PATIENT
  Age: 65 Year
  Sex: Female

DRUGS (5)
  1. FEMARA [Suspect]
     Active Substance: LETROZOLE
     Indication: Product used for unknown indication
     Dosage: UNK
     Route: 065
     Dates: start: 202202
  2. FOSAMAX [Concomitant]
     Active Substance: ALENDRONATE SODIUM
     Indication: Product used for unknown indication
     Dosage: UNK (TREATMENT STARTED IN THE LAST MONTH)
     Route: 065
  3. CALCIUM CARBONATE\CHOLECALCIFEROL [Concomitant]
     Active Substance: CALCIUM CARBONATE\CHOLECALCIFEROL
     Indication: Product used for unknown indication
     Dosage: UNK (TREATMENT STARTED IN THE LAST MONTH)
     Route: 065
  4. ASPIRIN [Concomitant]
     Active Substance: ASPIRIN
     Indication: Product used for unknown indication
     Dosage: UNK (TREATMENT INSTITUTED 12 YEARS AGO)
     Route: 065
  5. SIMVASTATIN [Concomitant]
     Active Substance: SIMVASTATIN
     Indication: Product used for unknown indication
     Dosage: 20 MG (TREATMENT CONTINUED FOR 15 YEARS)
     Route: 065

REACTIONS (8)
  - Inflammation [Unknown]
  - Lip swelling [Unknown]
  - Blepharitis [Unknown]
  - Hyperhidrosis [Unknown]
  - Swelling of eyelid [Unknown]
  - Eye swelling [Unknown]
  - Respiratory disorder [Not Recovered/Not Resolved]
  - Cheilitis [Unknown]
